FAERS Safety Report 10732741 (Version 11)
Quarter: 2018Q1

REPORT INFORMATION
  Report Type: Report from Study
  Country: JP (occurrence: JP)
  Receive Date: 20150123
  Receipt Date: 20180316
  Transmission Date: 20180508
  Serious: Yes (Hospitalization, Other)
  Sender: FDA-Public Use
  Company Number: JP-INCYTE CORPORATION-2015IN000128

PATIENT

DRUGS (3)
  1. JAKAVI [Suspect]
     Active Substance: RUXOLITINIB
     Dosage: 10 MG, BID
     Route: 048
     Dates: start: 20150107, end: 20150125
  2. JAKAVI [Suspect]
     Active Substance: RUXOLITINIB
     Dosage: 5 MG, BID
     Route: 048
     Dates: start: 20150126, end: 20150203
  3. JAKAVI [Suspect]
     Active Substance: RUXOLITINIB
     Indication: MYELOFIBROSIS
     Dosage: 15 MG, BID
     Route: 048
     Dates: start: 20141219, end: 20150106

REACTIONS (25)
  - Subcutaneous abscess [Unknown]
  - Blood alkaline phosphatase increased [Unknown]
  - Haemoglobin decreased [Unknown]
  - Musculoskeletal pain [Recovering/Resolving]
  - Skin lesion [Recovering/Resolving]
  - Skin induration [Unknown]
  - Blood bilirubin increased [Recovering/Resolving]
  - Rash erythematous [Recovered/Resolved]
  - Pyrexia [Recovered/Resolved]
  - Haematocrit decreased [Unknown]
  - Swelling [Unknown]
  - Panniculitis [Unknown]
  - Pain of skin [Unknown]
  - Skin swelling [Unknown]
  - Protein total decreased [Unknown]
  - Blood lactate dehydrogenase increased [Recovering/Resolving]
  - Necrotising fasciitis [Unknown]
  - Scrotal swelling [Unknown]
  - Gamma-glutamyltransferase increased [Unknown]
  - Rash erythematous [Recovered/Resolved]
  - Platelet count decreased [Unknown]
  - Acute febrile neutrophilic dermatosis [Recovered/Resolved]
  - Alanine aminotransferase increased [Recovering/Resolving]
  - Erythema [Unknown]
  - Red blood cell count decreased [Unknown]

NARRATIVE: CASE EVENT DATE: 20141218
